FAERS Safety Report 9784321 (Version 1)
Quarter: 2013Q4

REPORT INFORMATION
  Report Type: Spontaneous
  Country: US (occurrence: US)
  Receive Date: 20131226
  Receipt Date: 20131226
  Transmission Date: 20140711
  Serious: No
  Sender: FDA-Public Use
  Company Number: US-BIOGENIDEC-2013BI122681

PATIENT
  Sex: Female

DRUGS (10)
  1. TECFIDERA [Suspect]
     Indication: MULTIPLE SCLEROSIS
     Route: 048
     Dates: start: 20130529
  2. AMITRIPTYLINE HCL [Concomitant]
  3. ATENOLOL [Concomitant]
  4. CALCIUM [Concomitant]
  5. CYMBALTA [Concomitant]
  6. FENTANYL [Concomitant]
  7. LIPITOR [Concomitant]
  8. MORPHINE SULFATE [Concomitant]
  9. NEXIUM [Concomitant]
  10. PROVIGIL [Concomitant]

REACTIONS (2)
  - Weight decreased [Unknown]
  - White blood cell count decreased [Unknown]
